FAERS Safety Report 9933189 (Version 1)
Quarter: 2014Q1

REPORT INFORMATION
  Report Type: Spontaneous
  Country: US (occurrence: US)
  Receive Date: 20140228
  Receipt Date: 20140228
  Transmission Date: 20141002
  Serious: No
  Sender: FDA-Public Use
  Company Number: US-GLAXOSMITHKLINE-A1054126A

PATIENT
  Age: 51 Year
  Sex: Female

DRUGS (8)
  1. LAMICTAL [Suspect]
     Indication: BIPOLAR DISORDER
     Dosage: 300MG PER DAY
     Route: 048
     Dates: start: 20120815
  2. NSAID [Suspect]
     Indication: PRODUCT USED FOR UNKNOWN INDICATION
     Route: 065
     Dates: end: 20131216
  3. NAPROXEN [Suspect]
     Indication: PRODUCT USED FOR UNKNOWN INDICATION
     Route: 048
     Dates: end: 20131216
  4. ABILIFY [Concomitant]
  5. SUMAVEL [Concomitant]
  6. SYNTHROID [Concomitant]
  7. VIIBRYD [Concomitant]
  8. TOPAMAX [Concomitant]

REACTIONS (1)
  - Blood creatinine increased [Unknown]
